FAERS Safety Report 14953307 (Version 1)
Quarter: 2018Q2

REPORT INFORMATION
  Report Type: Spontaneous
  Country: CN (occurrence: CN)
  Receive Date: 20180530
  Receipt Date: 20180530
  Transmission Date: 20180711
  Serious: Yes (Other)
  Sender: FDA-Public Use
  Company Number: CN-NAPPMUNDI-GBR-2018-0055700

PATIENT
  Age: 66 Year
  Sex: Female
  Weight: 55 kg

DRUGS (1)
  1. BUPRENORPHINE. [Suspect]
     Active Substance: BUPRENORPHINE
     Indication: PAIN
     Dosage: 5 MG, WEEKLY (STRENGTH 5MG)
     Route: 062
     Dates: start: 20180121, end: 20180121

REACTIONS (4)
  - Vomiting [Recovering/Resolving]
  - Nausea [Recovering/Resolving]
  - Fatigue [Recovering/Resolving]
  - Mental disorder [Recovering/Resolving]

NARRATIVE: CASE EVENT DATE: 20180121
